FAERS Safety Report 18062995 (Version 1)
Quarter: 2020Q3

REPORT INFORMATION
  Report Type: Spontaneous
  Country: US (occurrence: US)
  Receive Date: 20200723
  Receipt Date: 20200723
  Transmission Date: 20201103
  Serious: No
  Sender: FDA-Public Use
  Company Number: US-IGSA-SR10009586

PATIENT
  Age: 72 Year
  Sex: Female
  Weight: 62.5 kg

DRUGS (13)
  1. GAMMAKED [Suspect]
     Active Substance: HUMAN IMMUNOGLOBULIN G
     Indication: CHRONIC INFLAMMATORY DEMYELINATING POLYRADICULONEUROPATHY
     Dosage: 60 G, Q.2WK.
     Route: 042
     Dates: start: 20191123, end: 20191205
  2. BENADRYL [Concomitant]
     Active Substance: DIPHENHYDRAMINE HYDROCHLORIDE
     Indication: PREMEDICATION
     Dosage: UNK
     Dates: start: 20191123
  3. ESTRACE [Concomitant]
     Active Substance: ESTRADIOL
     Dosage: 1 MG, BID
  4. PREDNISONE. [Concomitant]
     Active Substance: PREDNISONE
     Dosage: 3 MG, QD
  5. LOTENSIN [Concomitant]
     Active Substance: BENAZEPRIL HYDROCHLORIDE
     Indication: BLOOD PRESSURE MEASUREMENT
     Dosage: 5 MG, QD
  6. LOTENSIN [Concomitant]
     Active Substance: BENAZEPRIL HYDROCHLORIDE
     Dosage: 10 MG, BID
     Dates: start: 20191123
  7. TYLENOL [Concomitant]
     Active Substance: ACETAMINOPHEN
     Indication: PREMEDICATION
     Dosage: UNK
     Dates: start: 20191123
  8. CYTOMEL [Concomitant]
     Active Substance: LIOTHYRONINE SODIUM
     Dosage: 15 ?G, QD
  9. IMITREX [Concomitant]
     Active Substance: SUMATRIPTAN SUCCINATE
     Indication: PREMEDICATION
     Dosage: 100 MG, PRN
     Dates: start: 20191123
  10. VICODIN [Concomitant]
     Active Substance: ACETAMINOPHEN\HYDROCODONE BITARTRATE
  11. PROBENECID. [Concomitant]
     Active Substance: PROBENECID
     Dosage: 500 MG, BID
  12. LYRICA [Concomitant]
     Active Substance: PREGABALIN
     Dosage: 75 MG, TID
  13. THEOPHYLLINE [Concomitant]
     Active Substance: THEOPHYLLINE ANHYDROUS
     Dosage: 400 MG, BID

REACTIONS (2)
  - Migraine [Recovered/Resolved]
  - Blood pressure increased [Not Recovered/Not Resolved]

NARRATIVE: CASE EVENT DATE: 20191123
